FAERS Safety Report 10226356 (Version 2)
Quarter: 2014Q2

REPORT INFORMATION
  Report Type: Spontaneous
  Country: GB (occurrence: GB)
  Receive Date: 20140609
  Receipt Date: 20140619
  Transmission Date: 20141212
  Serious: Yes (Other)
  Sender: FDA-Public Use
  Company Number: GB-ABBVIE-14P-167-1244209-00

PATIENT
  Sex: Male

DRUGS (3)
  1. HUMIRA [Suspect]
     Indication: RHEUMATOID ARTHRITIS
     Dosage: 2 WEEKLY; DURATION: OVER 6 YEARS
  2. HUMIRA [Suspect]
     Dosage: 2 WEEKLY
     Dates: start: 20140522
  3. METHOTREXATE [Concomitant]
     Indication: PRODUCT USED FOR UNKNOWN INDICATION
     Dosage: HAD NOT TAKEN FOR 2.5 YEARS
     Dates: end: 2011

REACTIONS (6)
  - Pain [Unknown]
  - Pain [Unknown]
  - Kidney infection [Recovered/Resolved]
  - Rheumatoid arthritis [Unknown]
  - Drug effect decreased [Unknown]
  - Drug ineffective [Unknown]
